FAERS Safety Report 6759808-X (Version None)
Quarter: 2010Q2

REPORT INFORMATION
  Report Type: 
  Country: None (occurrence: None)
  Receive Date: 20100608
  Receipt Date: 20100531
  Transmission Date: 20101027
  Serious: Yes (Disabling)
  Sender: FDA-Public Use
  Company Number: CA-JNJFOC-20100503314

PATIENT
  Sex: Female

DRUGS (5)
  1. ELMIRON [Suspect]
     Indication: CYSTITIS INTERSTITIAL
     Dosage: 2 CAPSULES IN THE MORNING AND 1 CAPSULE IN THE AFTERNOON INITIATED 2 WEEKS PRIOR TO THE REPORT
     Route: 048
     Dates: start: 20100421
  2. NOVONAPROX [Concomitant]
     Indication: PAIN
  3. DIOVAN HCT [Concomitant]
     Indication: HYPERTENSION
  4. STATEX [Concomitant]
     Indication: PAIN
  5. PULMICORT [Concomitant]
     Indication: ASTHMA

REACTIONS (1)
  - MYALGIA [None]
